FAERS Safety Report 9704708 (Version 2)
Quarter: 2013Q4

REPORT INFORMATION
  Report Type: Spontaneous
  Country: US (occurrence: US)
  Receive Date: 20131122
  Receipt Date: 20131122
  Transmission Date: 20140711
  Serious: Yes (Other)
  Sender: FDA-Public Use
  Company Number: US-UCBSA-103383

PATIENT
  Age: 47 Year
  Sex: Female

DRUGS (8)
  1. CETIRIZINE HYDROCHLORIDE [Suspect]
     Dosage: 1MG/ML
     Route: 048
  2. HYDROXYZINE [Suspect]
     Dosage: 10MG/ML
  3. HYDROXYZINE [Suspect]
  4. LEVOCETIRIZINE [Suspect]
     Dosage: 2.5MG/ML
  5. DIPHENHYDRAMINE [Suspect]
     Dosage: 12.5MG/5ML
  6. FEXOFENADINE [Suspect]
     Dosage: 30MG/ML
  7. DOXEPIN [Suspect]
     Dosage: 10MG/ML
  8. LORATADINE [Suspect]
     Dosage: 5MG/ML

REACTIONS (6)
  - Angioedema [Unknown]
  - Drug eruption [Unknown]
  - Urticaria [Unknown]
  - Dyspnoea [Recovering/Resolving]
  - Cough [Recovering/Resolving]
  - Pruritus [Recovering/Resolving]
